FAERS Safety Report 20428827 (Version 1)
Quarter: 2022Q1

REPORT INFORMATION
  Report Type: Spontaneous
  Country: IN (occurrence: IN)
  Receive Date: 20220204
  Receipt Date: 20220204
  Transmission Date: 20220424
  Serious: Yes (Life-Threatening, Hospitalization, Other)
  Sender: FDA-Public Use
  Company Number: None

PATIENT
  Age: 40 Year
  Sex: Male

DRUGS (2)
  1. DEXAMETHASONE [Suspect]
     Active Substance: DEXAMETHASONE
     Indication: COVID-19
     Dosage: 6 MILLIGRAM, DAILY, WAS CONTINUED FOR 14 DAYS
     Route: 042
  2. PREDNISOLONE [Suspect]
     Active Substance: PREDNISOLONE
     Indication: COVID-19
     Dosage: 40 MILLIGRAM, FOR 5 DAYS
     Route: 048

REACTIONS (17)
  - Necrotising colitis [Recovered/Resolved]
  - Amoebic colitis [Recovered/Resolved]
  - Metabolic acidosis [Recovered/Resolved]
  - Fascial infection [Recovered/Resolved]
  - Dehiscence [Recovered/Resolved]
  - Large intestine perforation [Recovered/Resolved]
  - Postoperative wound infection [Recovered/Resolved]
  - Hepatic necrosis [Recovered/Resolved]
  - Portal vein thrombosis [Recovered/Resolved]
  - Hypoalbuminaemia [Recovered/Resolved]
  - Pneumoperitoneum [Recovered/Resolved]
  - Amoebiasis [Recovered/Resolved]
  - Liver abscess [Recovered/Resolved]
  - Wound dehiscence [Recovered/Resolved]
  - Large intestinal ulcer [Recovered/Resolved]
  - Anaemia [Recovered/Resolved]
  - Off label use [Unknown]
